FAERS Safety Report 8643778 (Version 3)
Quarter: 2013Q2

REPORT INFORMATION
  Report Type: Spontaneous
  Country: US (occurrence: US)
  Receive Date: 20120629
  Receipt Date: 20130529
  Transmission Date: 20140414
  Serious: Yes (Congenital Anomaly, Other)
  Sender: FDA-Public Use
  Company Number: US-PFIZER INC-2012153800

PATIENT
  Sex: Female

DRUGS (19)
  1. ZOLOFT [Suspect]
     Dosage: UNK
     Route: 064
     Dates: start: 1997, end: 200912
  2. AZITHROMYCIN [Concomitant]
     Dosage: 250 MG, UNK
     Route: 064
     Dates: start: 20090920
  3. HYDROCODONE-APAP [Concomitant]
     Dosage: 7.5MG/500MG, 3X/DAY
     Route: 064
     Dates: start: 20090213
  4. HYDROCODONE-APAP [Concomitant]
     Dosage: 5MG/500MG, EVERY NIGHT AT BED TIME
     Route: 064
     Dates: start: 20090504
  5. HYDROCODONE-APAP [Concomitant]
     Dosage: 5MG/500MG, 4X/DAY
     Route: 064
     Dates: start: 20090904
  6. DIAZEPAM [Concomitant]
     Dosage: 5 MG, 2X/DAY
     Route: 064
     Dates: start: 20090204
  7. TRAMADOL [Concomitant]
     Dosage: 50 MG, 3X/DAY
     Route: 064
     Dates: start: 20090205
  8. TRAMADOL [Concomitant]
     Dosage: 50 MG, 4X/DAY
     Route: 064
     Dates: start: 20090701
  9. TRAMADOL [Concomitant]
     Dosage: ONE TO TWO 50MG TABLETS, 4X/DAY
     Route: 064
     Dates: start: 20090820
  10. CARISOPRODOL [Concomitant]
     Dosage: 350 MG, 3X/DAY
     Route: 064
     Dates: start: 20090206
  11. ABILIFY [Concomitant]
     Dosage: ONE TO TWO 5MG TABLETS, 1X/DAY
     Route: 064
     Dates: start: 20090213
  12. LORAZEPAM [Concomitant]
     Dosage: 1 MG, 3X/DAY
     Route: 064
     Dates: start: 20090223
  13. SULFAMETH/TRIMETHOPRIM [Concomitant]
     Dosage: 2X/DAY
     Route: 064
     Dates: start: 20090312
  14. ERY-TAB [Concomitant]
     Dosage: 500 MG, 4X/DAY
     Route: 064
     Dates: start: 20090319
  15. LYRICA [Concomitant]
     Dosage: 150 MG, 2X/DAY
     Route: 064
     Dates: start: 20090601
  16. CEPHALEXIN [Concomitant]
     Dosage: 250 MG, 3X/DAY
     Route: 064
     Dates: start: 20090904
  17. CEPHALEXIN [Concomitant]
     Dosage: 1000 MG (500MG TWO CAPSULES), UNK
     Route: 064
     Dates: start: 20091027
  18. CEPHALEXIN [Concomitant]
     Dosage: 500 MG, 3X/DAY
     Route: 064
  19. SERTRALINE [Concomitant]
     Dosage: 100 MG, 2X/DAY
     Route: 064
     Dates: start: 20090525

REACTIONS (4)
  - Maternal exposure timing unspecified [Not Recovered/Not Resolved]
  - Pulmonary valve stenosis [Not Recovered/Not Resolved]
  - Patent ductus arteriosus [Not Recovered/Not Resolved]
  - Atrial septal defect [Not Recovered/Not Resolved]
